FAERS Safety Report 7880636-6 (Version None)
Quarter: 2011Q4

REPORT INFORMATION
  Report Type: 
  Country: None (occurrence: None)
  Receive Date: 20111101
  Receipt Date: 20111025
  Transmission Date: 20120403
  Serious: Yes (Death)
  Sender: FDA-Public Use
  Company Number: US-CELGENEUS-163-21880-11103208

PATIENT
  Sex: Female
  Weight: 52.6 kg

DRUGS (8)
  1. ASPIRIN [Concomitant]
     Route: 065
  2. SIMVASTATIN [Concomitant]
     Route: 065
  3. FOLIC ACID [Concomitant]
     Route: 065
  4. LISINOPRIL [Concomitant]
     Route: 065
  5. HYDRALAZINE HCL [Concomitant]
     Route: 065
  6. ZOLOFT [Concomitant]
     Route: 065
  7. REVLIMID [Suspect]
     Dosage: 5 MILLIGRAM
     Route: 048
     Dates: start: 20110923, end: 20111007
  8. BISOPROLOL FUMARATE [Concomitant]
     Route: 065

REACTIONS (1)
  - DEATH [None]
